FAERS Safety Report 8780802 (Version 2)
Quarter: 2012Q4

REPORT INFORMATION
  Report Type: 
  Country: US (occurrence: US)
  Receive Date: 20120913
  Receipt Date: 20121011
  Transmission Date: 20130627
  Serious: No
  Sender: FDA-Public Use
  Company Number: US-009507513-1208USA007038

PATIENT
  Sex: Female

DRUGS (1)
  1. NEXPLANON [Suspect]
     Indication: CONTRACEPTION
     Dosage: UNK
     Dates: start: 20120110, end: 20120124

REACTIONS (4)
  - Pain in extremity [Recovering/Resolving]
  - Medical device complication [Unknown]
  - Device difficult to use [Unknown]
  - Device dislocation [Unknown]
